FAERS Safety Report 24579003 (Version 2)
Quarter: 2025Q2

REPORT INFORMATION
  Report Type: Other
  Country: CN (occurrence: CN)
  Receive Date: 20241105
  Receipt Date: 20250520
  Transmission Date: 20250716
  Serious: Yes (Hospitalization)
  Sender: QILU PHARMACEUTICAL (HAINAN) CO., LTD.
  Company Number: CN-QILU PHARMACEUTICAL (HAINAN) CO.  LTD.-QLH-000297-2024

PATIENT
  Age: 47 Year
  Sex: Male
  Weight: 75 kg

DRUGS (5)
  1. OXALIPLATIN [Suspect]
     Active Substance: OXALIPLATIN
     Indication: Colon cancer
     Dosage: 150 MG ONCE A DAY (AS A PART OF FOLFOX THERAPY)
     Route: 041
     Dates: start: 20241017, end: 20241017
  2. LEUCOVORIN CALCIUM [Concomitant]
     Active Substance: LEUCOVORIN CALCIUM
     Indication: Colon cancer
     Dosage: 600 MG ONCE A DAY (QD) (AS A PART OF FOLFOX THERAPY)
     Route: 041
     Dates: start: 20241017, end: 20241017
  3. FLUOROURACIL [Concomitant]
     Active Substance: FLUOROURACIL
     Indication: Colon cancer
     Dosage: 600 MG ONCE A DAY (QD) (AS A PART OF FOLFOX THERAPY)
     Route: 041
     Dates: start: 20241017, end: 20241017
  4. FLUOROURACIL [Concomitant]
     Active Substance: FLUOROURACIL
     Route: 042
     Dates: start: 20241017, end: 20241017
  5. BEVACIZUMAB [Concomitant]
     Active Substance: BEVACIZUMAB
     Indication: Colon cancer
     Dosage: 525 MG ONCE A DAY (QD)
     Route: 041
     Dates: start: 20241017, end: 20241017

REACTIONS (4)
  - Foaming at mouth [Recovered/Resolved]
  - Anal incontinence [Recovered/Resolved]
  - Hyperhidrosis [Recovered/Resolved]
  - Asthenia [Recovered/Resolved]

NARRATIVE: CASE EVENT DATE: 20241017
